FAERS Safety Report 6983402-9 (Version None)
Quarter: 2010Q3

REPORT INFORMATION
  Report Type: 
  Country: None (occurrence: None)
  Receive Date: 20100914
  Receipt Date: 20100914
  Transmission Date: 20110219
  Serious: Yes (Other)
  Sender: FDA-Public Use
  Company Number: None

PATIENT
  Age: 34 Year
  Sex: Female
  Weight: 81.6475 kg

DRUGS (2)
  1. PEGASYS 180MCG/0.5ML ROCHE GENENTEC [Suspect]
     Indication: HEPATITIS C
     Dosage: 180MCG -0.5ML- WEEKLY SQ
     Route: 058
     Dates: start: 20100113, end: 20100630
  2. RIBASPHERE [Suspect]
     Dosage: 200MG TWICE DAILY PO
     Route: 048
     Dates: start: 20100113, end: 20100630

REACTIONS (2)
  - ALOPECIA [None]
  - DRY SKIN [None]
